FAERS Safety Report 10453063 (Version 2)
Quarter: 2014Q3

REPORT INFORMATION
  Report Type: Report from Study
  Country: US (occurrence: US)
  Receive Date: 20140915
  Receipt Date: 20140917
  Transmission Date: 20150326
  Serious: Yes (Death)
  Sender: FDA-Public Use
  Company Number: US-GLAXOSMITHKLINE-A0977212C

PATIENT
  Age: 68 Year
  Sex: Male
  Weight: 85.5 kg

DRUGS (18)
  1. OFATUMUMAB [Suspect]
     Active Substance: OFATUMUMAB
     Indication: CHRONIC LYMPHOCYTIC LEUKAEMIA
     Dosage: 1000MG MONTHLY
     Route: 042
     Dates: start: 20120501, end: 20140819
  2. DEXAMETHASONE. [Concomitant]
     Active Substance: DEXAMETHASONE
  3. HYDROCORTISONE. [Concomitant]
     Active Substance: HYDROCORTISONE
  4. KEPPRA [Concomitant]
     Active Substance: LEVETIRACETAM
  5. MULTIVITAMIN [Concomitant]
     Active Substance: VITAMINS
  6. KETOCONAZOLE. [Concomitant]
     Active Substance: KETOCONAZOLE
  7. ASCORBIC ACID. [Concomitant]
     Active Substance: ASCORBIC ACID
  8. VITAMIN D3 [Concomitant]
     Active Substance: CHOLECALCIFEROL
  9. DALTEPARIN SODIUM [Concomitant]
     Active Substance: DALTEPARIN SODIUM
  10. DESONIDE. [Concomitant]
     Active Substance: DESONIDE
  11. NEURONTIN [Concomitant]
     Active Substance: GABAPENTIN
  12. VALCYTE [Concomitant]
     Active Substance: VALGANCICLOVIR HYDROCHLORIDE
  13. TRIAMCINOLONE [Concomitant]
     Active Substance: TRIAMCINOLONE
  14. ALEMTUZUMAB [Suspect]
     Active Substance: ALEMTUZUMAB
     Indication: CHRONIC LYMPHOCYTIC LEUKAEMIA
     Dosage: 30MG THREE TIMES PER WEEK
     Route: 058
     Dates: start: 20120820, end: 20140819
  15. ATOVAQUONE. [Concomitant]
     Active Substance: ATOVAQUONE
  16. FOLIC ACID. [Concomitant]
     Active Substance: FOLIC ACID
  17. CLOBETASOL PROPIONATE. [Concomitant]
     Active Substance: CLOBETASOL PROPIONATE
  18. TEGRETOL [Concomitant]
     Active Substance: CARBAMAZEPINE

REACTIONS (2)
  - Pneumonia [Fatal]
  - Respiratory failure [Fatal]

NARRATIVE: CASE EVENT DATE: 20140909
